FAERS Safety Report 20320394 (Version 1)
Quarter: 2022Q1

REPORT INFORMATION
  Report Type: Spontaneous
  Country: DE (occurrence: DE)
  Receive Date: 20220111
  Receipt Date: 20220111
  Transmission Date: 20220423
  Serious: Yes (Other)
  Sender: FDA-Public Use
  Company Number: None

PATIENT
  Age: 35 Year
  Sex: Male

DRUGS (1)
  1. MINOXIDIL [Suspect]
     Active Substance: MINOXIDIL
     Indication: Hair growth rate abnormal
     Dosage: 5% TOPICAL SOLUTION; IN TOTAL
     Route: 061
     Dates: start: 202107, end: 202107

REACTIONS (2)
  - Erectile dysfunction [Not Recovered/Not Resolved]
  - Loss of libido [Unknown]

NARRATIVE: CASE EVENT DATE: 20210101
